FAERS Safety Report 26001418 (Version 1)
Quarter: 2025Q4

REPORT INFORMATION
  Report Type: Spontaneous
  Country: US (occurrence: US)
  Receive Date: 20251105
  Receipt Date: 20251105
  Transmission Date: 20260117
  Serious: No
  Sender: PFIZER
  Company Number: US-PFIZER INC-202500215869

PATIENT
  Age: 18 Year
  Sex: Female
  Weight: 58.05 kg

DRUGS (3)
  1. LITFULO [Suspect]
     Active Substance: RITLECITINIB TOSYLATE
     Indication: Alopecia
     Dosage: 50 MG, DAILY
     Route: 048
     Dates: start: 20250922, end: 20251020
  2. IRON [Concomitant]
     Active Substance: IRON
     Indication: Anaemia
     Dosage: 324 MG, ONCE A DAY
  3. MINOXIDIL [Concomitant]
     Active Substance: MINOXIDIL
     Indication: Alopecia
     Dosage: 2.5 MG, ONCE A DAY (WAS TOLD TO TAKE THIS IN CONJUNCTION WITH LITFULO)

REACTIONS (1)
  - Urticaria [Not Recovered/Not Resolved]

NARRATIVE: CASE EVENT DATE: 20251023
